FAERS Safety Report 6057760-6 (Version None)
Quarter: 2009Q1

REPORT INFORMATION
  Report Type: 
  Country: None (occurrence: None)
  Receive Date: 20090129
  Receipt Date: 20090119
  Transmission Date: 20090719
  Serious: Yes (Hospitalization, Other)
  Sender: FDA-Public Use
  Company Number: PHHY2009GB01669

PATIENT
  Sex: Male

DRUGS (3)
  1. CLOZARIL [Suspect]
     Indication: SCHIZOPHRENIA
     Dosage: 700 MG/DAY
     Route: 048
     Dates: start: 19980623
  2. CLOZARIL [Suspect]
     Dosage: UNK
     Dates: start: 20090110
  3. CLOZARIL [Suspect]
     Dosage: 200 MG DAILY
     Dates: start: 20090110

REACTIONS (5)
  - BODY TEMPERATURE INCREASED [None]
  - INFECTION [None]
  - MYOCARDIAL INFARCTION [None]
  - TACHYCARDIA [None]
  - VIRAL MYOCARDITIS [None]
